FAERS Safety Report 8820921 (Version 1)
Quarter: 2012Q4

REPORT INFORMATION
  Report Type: Report from Study
  Country: CL (occurrence: CL)
  Receive Date: 20121002
  Receipt Date: 20121002
  Transmission Date: 20130627
  Serious: Yes (Hospitalization, Other)
  Sender: FDA-Public Use
  Company Number: CL-ROCHE-1140148

PATIENT
  Age: 74 Year
  Sex: Female
  Weight: 50 kg

DRUGS (1)
  1. XELODA [Suspect]
     Indication: COLON CANCER
     Route: 048
     Dates: start: 20120730, end: 20120921

REACTIONS (2)
  - Blood urine [Recovered/Resolved]
  - Urinary tract infection [Not Recovered/Not Resolved]
